FAERS Safety Report 7200019-1 (Version None)
Quarter: 2010Q4

REPORT INFORMATION
  Report Type: 
  Country: None (occurrence: None)
  Receive Date: 20101228
  Receipt Date: 20101217
  Transmission Date: 20110411
  Serious: Yes (Other)
  Sender: FDA-Public Use
  Company Number: US-AMGEN-KDL441633

PATIENT

DRUGS (2)
  1. ENBREL [Suspect]
     Indication: PSORIATIC ARTHROPATHY
     Dosage: 50 MG, QWK
     Route: 058
     Dates: start: 20070101
  2. ENBREL [Suspect]
     Indication: PSORIASIS

REACTIONS (6)
  - CONJUNCTIVAL HYPERAEMIA [None]
  - DRY EYE [None]
  - FATIGUE [None]
  - OBSESSIVE-COMPULSIVE DISORDER [None]
  - SINUS CONGESTION [None]
  - VISION BLURRED [None]
